FAERS Safety Report 11964799 (Version 2)
Quarter: 2016Q2

REPORT INFORMATION
  Report Type: Spontaneous
  Country: US (occurrence: US)
  Receive Date: 20160127
  Receipt Date: 20160420
  Transmission Date: 20160815
  Serious: No
  Sender: FDA-Public Use
  Company Number: US-PFIZER INC-2016040096

PATIENT
  Age: 67 Year
  Sex: Male

DRUGS (6)
  1. VIAGRA [Suspect]
     Active Substance: SILDENAFIL CITRATE
     Dosage: 20 MG, UNK
     Dates: start: 20160102, end: 20160303
  2. BABY ASPIRIN [Concomitant]
     Active Substance: ASPIRIN
     Dosage: 81 MG, 1X/DAY
     Dates: start: 2000
  3. CIALIS [Concomitant]
     Active Substance: TADALAFIL
     Dosage: 5 MG, UNK
  4. FLOMAX [Concomitant]
     Active Substance: TAMSULOSIN HYDROCHLORIDE
     Dosage: 0.4 MG, UNK
  5. GEMFIBROZIL. [Concomitant]
     Active Substance: GEMFIBROZIL
     Indication: BLOOD CHOLESTEROL ABNORMAL
     Dosage: 500 MG, 2X/DAY, ONE IN THE MORNING AND ONE AT NIGHT
     Dates: start: 2000
  6. VIAGRA [Suspect]
     Active Substance: SILDENAFIL CITRATE
     Indication: ERECTILE DYSFUNCTION
     Dosage: HALF OF 50MG TABLET, THREE TO FOUR HOURS BEFORE BEDTIME
     Route: 048

REACTIONS (3)
  - Oropharyngeal pain [Recovered/Resolved]
  - Expired product administered [Unknown]
  - Sinusitis [Recovered/Resolved]

NARRATIVE: CASE EVENT DATE: 20150131
